FAERS Safety Report 7322967-4 (Version None)
Quarter: 2011Q1

REPORT INFORMATION
  Report Type: 
  Country: None (occurrence: None)
  Receive Date: 20110301
  Receipt Date: 20110223
  Transmission Date: 20110831
  Serious: Yes (Life-Threatening, Hospitalization)
  Sender: FDA-Public Use
  Company Number: PHHY2011CM15269

PATIENT
  Age: 12 Year
  Sex: Male

DRUGS (1)
  1. COARTEM [Suspect]

REACTIONS (1)
  - HAEMOLYSIS [None]
